FAERS Safety Report 7270733-0 (Version None)
Quarter: 2011Q1

REPORT INFORMATION
  Report Type: 
  Country: None (occurrence: None)
  Receive Date: 20110202
  Receipt Date: 20110127
  Transmission Date: 20110831
  Serious: Yes (Other)
  Sender: FDA-Public Use
  Company Number: B0697522A

PATIENT
  Age: 61 Year
  Sex: Male

DRUGS (1)
  1. AUGMENTIN '125' [Suspect]
     Indication: BRONCHITIS

REACTIONS (3)
  - SWOLLEN TONGUE [None]
  - PRURITUS [None]
  - SHOCK [None]
